FAERS Safety Report 9712530 (Version 1)
Quarter: 2013Q4

REPORT INFORMATION
  Report Type: Spontaneous
  Country: US (occurrence: US)
  Receive Date: 20131126
  Receipt Date: 20131126
  Transmission Date: 20140711
  Serious: No
  Sender: FDA-Public Use
  Company Number: US-BRISTOL-MYERS SQUIBB COMPANY-18881250

PATIENT
  Age: 68 Year
  Sex: Male
  Weight: 102.04 kg

DRUGS (4)
  1. BYDUREON [Suspect]
  2. GLUMETZA [Concomitant]
  3. LANTUS [Concomitant]
     Dosage: 28UNITS QD
  4. HUMALOG [Concomitant]
     Dosage: 4-6 UNITS AS NEEDED BEFORE.

REACTIONS (2)
  - Injection site swelling [Unknown]
  - Injection site extravasation [Unknown]
